FAERS Safety Report 8405879-4 (Version None)
Quarter: 2012Q1

REPORT INFORMATION
  Report Type: 
  Country: None (occurrence: None)
  Receive Date: 20120323
  Receipt Date: 20110610
  Transmission Date: 20120608
  Serious: Yes (Hospitalization)
  Sender: FDA-Public Use
  Company Number: 163-21880-10122539

PATIENT
  Age: 71 Year
  Sex: Male
  Weight: 90.4 kg

DRUGS (15)
  1. REVLIMID [Suspect]
     Indication: MULTIPLE MYELOMA
     Dosage: 25 MG, DAILY X 21 OF 28 DAYS, PO
     Route: 048
     Dates: start: 20101129
  2. LISINOPRIL [Concomitant]
  3. METOPROLOL TARTRATE [Concomitant]
  4. FLOMAX [Concomitant]
  5. MS CONTIN [Concomitant]
  6. CALCIUM PLUS VITAMIN D (OS-CAL) [Concomitant]
  7. MYCELEX [Concomitant]
  8. DAPSONE [Concomitant]
  9. ZOMETA [Concomitant]
  10. PRILOSEC [Concomitant]
  11. DEXAMETHASONE [Concomitant]
  12. ACYCLOVIR [Concomitant]
  13. VELCADE [Concomitant]
  14. BACTRIM [Concomitant]
  15. ASPIRIN [Concomitant]

REACTIONS (2)
  - RASH [None]
  - VIRAL INFECTION [None]
